FAERS Safety Report 10879546 (Version 1)
Quarter: 2015Q1

REPORT INFORMATION
  Report Type: Spontaneous
  Country: US (occurrence: US)
  Receive Date: 20150302
  Receipt Date: 20150302
  Transmission Date: 20150721
  Serious: Yes (Hospitalization)
  Sender: FDA-Public Use
  Company Number: US-VIVUS-2015V1000068

PATIENT
  Age: 4 Day
  Sex: Female
  Weight: 3.36 kg

DRUGS (1)
  1. QSYMIA [Suspect]
     Active Substance: PHENTERMINE HYDROCHLORIDE\TOPIRAMATE
     Indication: PRODUCT USED FOR UNKNOWN INDICATION
     Route: 015

REACTIONS (3)
  - Maternal drugs affecting foetus [None]
  - Premature baby [None]
  - Hyperbilirubinaemia neonatal [Unknown]

NARRATIVE: CASE EVENT DATE: 20141229
